FAERS Safety Report 9045768 (Version 1)
Quarter: 2013Q1

REPORT INFORMATION
  Report Type: Report from Study
  Country: US (occurrence: US)
  Receive Date: 20130131
  Receipt Date: 20130131
  Transmission Date: 20140127
  Serious: No
  Sender: FDA-Public Use
  Company Number: US-ABBOTT-12P-163-1016782-00

PATIENT
  Age: 53 None
  Sex: Male
  Weight: 68.1 kg

DRUGS (5)
  1. HUMIRA [Suspect]
     Indication: SJOGREN^S SYNDROME
     Dates: start: 2010
  2. LIPITOR [Concomitant]
     Indication: BLOOD CHOLESTEROL INCREASED
  3. ELAVIL [Concomitant]
     Indication: ATTENTION DEFICIT/HYPERACTIVITY DISORDER
  4. MYELIX [Concomitant]
     Indication: CANDIDA INFECTION
  5. ADVAIR [Concomitant]
     Indication: ASTHMA
     Dosage: INHALER

REACTIONS (1)
  - Arthralgia [Not Recovered/Not Resolved]
